FAERS Safety Report 6730448-1 (Version None)
Quarter: 2010Q2

REPORT INFORMATION
  Report Type: 
  Country: None (occurrence: None)
  Receive Date: 20100518
  Receipt Date: 20100512
  Transmission Date: 20101027
  Serious: Yes (Hospitalization)
  Sender: FDA-Public Use
  Company Number: B0653322A

PATIENT
  Sex: Male

DRUGS (1)
  1. ZENTEL [Suspect]
     Indication: TOXOCARIASIS
     Dosage: 200MG PER DAY
     Route: 048
     Dates: start: 20100323, end: 20100327

REACTIONS (2)
  - JARISCH-HERXHEIMER REACTION [None]
  - PYREXIA [None]
